FAERS Safety Report 9903734 (Version 2)
Quarter: 2014Q2

REPORT INFORMATION
  Report Type: Spontaneous
  Country: US (occurrence: US)
  Receive Date: 20140218
  Receipt Date: 20140604
  Transmission Date: 20141212
  Serious: Yes (Hospitalization, Other)
  Sender: FDA-Public Use
  Company Number: US-AMGEN-USASP2014011070

PATIENT
  Age: 51 Year
  Sex: Male

DRUGS (6)
  1. ENBREL [Suspect]
     Indication: RHEUMATOID ARTHRITIS
     Dosage: 50 MG, QWK
     Route: 065
     Dates: start: 20121120
  2. ENBREL [Suspect]
     Dosage: UNK
     Route: 065
  3. ENBREL [Suspect]
     Dosage: UNK
     Route: 065
  4. ENBREL [Suspect]
     Dosage: UNK
     Route: 065
  5. METHOTREXATE [Suspect]
     Indication: PRODUCT USED FOR UNKNOWN INDICATION
     Dosage: 1 MG, QWK
     Route: 065
     Dates: start: 201008
  6. PREDNISONE [Concomitant]
     Dosage: UNK

REACTIONS (34)
  - Catheterisation cardiac [Recovered/Resolved]
  - Hepatic neoplasm [Not Recovered/Not Resolved]
  - Pulmonary mass [Not Recovered/Not Resolved]
  - Vascular pseudoaneurysm [Recovered/Resolved]
  - Large intestine polyp [Not Recovered/Not Resolved]
  - Arterial rupture [Recovered/Resolved]
  - Abdominal hernia [Not Recovered/Not Resolved]
  - Convulsion [Not Recovered/Not Resolved]
  - Chest pain [Recovered/Resolved]
  - Chills [Not Recovered/Not Resolved]
  - Dysgeusia [Not Recovered/Not Resolved]
  - Mass [Not Recovered/Not Resolved]
  - Influenza like illness [Not Recovered/Not Resolved]
  - Nausea [Not Recovered/Not Resolved]
  - Contusion [Not Recovered/Not Resolved]
  - Nodule [Not Recovered/Not Resolved]
  - Abdominal discomfort [Not Recovered/Not Resolved]
  - Gastrointestinal disorder [Not Recovered/Not Resolved]
  - Hyperhidrosis [Not Recovered/Not Resolved]
  - Hearing impaired [Not Recovered/Not Resolved]
  - Hypoaesthesia [Not Recovered/Not Resolved]
  - Skin discolouration [Not Recovered/Not Resolved]
  - Vision blurred [Not Recovered/Not Resolved]
  - Stomach mass [Unknown]
  - Arthropathy [Not Recovered/Not Resolved]
  - Pain in extremity [Not Recovered/Not Resolved]
  - Mobility decreased [Not Recovered/Not Resolved]
  - Arthralgia [Not Recovered/Not Resolved]
  - Eye pain [Not Recovered/Not Resolved]
  - Head injury [Not Recovered/Not Resolved]
  - Bronchitis [Not Recovered/Not Resolved]
  - Injection site pain [Not Recovered/Not Resolved]
  - Injection site bruising [Not Recovered/Not Resolved]
  - Injection site rash [Not Recovered/Not Resolved]
